FAERS Safety Report 12136123 (Version 1)
Quarter: 2016Q1

REPORT INFORMATION
  Report Type: Spontaneous
  Country: US (occurrence: US)
  Receive Date: 20160302
  Receipt Date: 20160302
  Transmission Date: 20160526
  Serious: Yes (Hospitalization)
  Sender: FDA-Public Use
  Company Number: US-ASTRAZENECA-2016SE19802

PATIENT
  Age: 32367 Day
  Sex: Male
  Weight: 60.3 kg

DRUGS (6)
  1. AMIODARONE [Suspect]
     Active Substance: AMIODARONE
     Indication: TACHYCARDIA
     Dosage: ZYDUS PHARMA, 200 MG, TAKE HALF A TABLET ONCE A DAY
     Route: 048
     Dates: start: 20150925
  2. ASPIRIN. [Concomitant]
     Active Substance: ASPIRIN
     Indication: ANTIPLATELET THERAPY
     Route: 048
  3. LOSARTAN. [Suspect]
     Active Substance: LOSARTAN
     Indication: BLOOD PRESSURE ABNORMAL
     Route: 048
  4. ATORVASTATIN [Suspect]
     Active Substance: ATORVASTATIN
     Indication: BLOOD CHOLESTEROL ABNORMAL
     Dosage: GREENSTONE, 40 MG, ONCE A DAY
     Route: 048
     Dates: start: 201207
  5. TOPROL XL [Suspect]
     Active Substance: METOPROLOL SUCCINATE
     Route: 048
  6. ELIQUIS [Suspect]
     Active Substance: APIXABAN
     Indication: ANTIPLATELET THERAPY
     Dosage: BMS PRIMARY CARE, 2.5 MG, TWO TABLETS PER DAY.
     Route: 048
     Dates: start: 20150925

REACTIONS (4)
  - Lip swelling [Not Recovered/Not Resolved]
  - Haemorrhage [Recovered/Resolved]
  - Chapped lips [Not Recovered/Not Resolved]
  - Atrial fibrillation [Recovered/Resolved]

NARRATIVE: CASE EVENT DATE: 20150924
